FAERS Safety Report 16685421 (Version 2)
Quarter: 2019Q3

REPORT INFORMATION
  Report Type: Spontaneous
  Country: US (occurrence: US)
  Receive Date: 20190809
  Receipt Date: 20190910
  Transmission Date: 20191004
  Serious: Yes (Hospitalization)
  Sender: FDA-Public Use
  Company Number: US-SA-2019SA212098

PATIENT
  Age: 67 Year
  Sex: Female

DRUGS (1)
  1. LANTUS SOLOSTAR [Suspect]
     Active Substance: INSULIN GLARGINE
     Indication: TYPE 2 DIABETES MELLITUS
     Dosage: 5 U, HS
     Route: 058
     Dates: start: 201907

REACTIONS (9)
  - Product storage error [Unknown]
  - Injection site haemorrhage [Unknown]
  - Blood electrolytes abnormal [Unknown]
  - Hypertension [Unknown]
  - Blood glucose increased [Unknown]
  - Confusional state [Unknown]
  - Dehydration [Unknown]
  - Suspected product contamination [Unknown]
  - Blood sodium decreased [Unknown]
